FAERS Safety Report 24205017 (Version 3)
Quarter: 2024Q3

REPORT INFORMATION
  Report Type: Spontaneous
  Country: PT (occurrence: PT)
  Receive Date: 20240813
  Receipt Date: 20240910
  Transmission Date: 20241016
  Serious: Yes (Death)
  Sender: GILEAD
  Company Number: None

PATIENT
  Age: 90 Year
  Sex: Female

DRUGS (11)
  1. VEKLURY [Suspect]
     Active Substance: REMDESIVIR
     Indication: COVID-19
     Dosage: 200 MG FIRST DOSE; 400 MG REMAINING 4 DOSES
     Route: 042
     Dates: start: 20220117, end: 20220120
  2. ENOXAPARIN [Concomitant]
     Active Substance: ENOXAPARIN
  3. BUTYLSCOPOLAMINE [Concomitant]
     Active Substance: BUTYLSCOPOLAMINE
  4. RINGER LACTATE [CALCIUM CHLORIDE DIHYDRATE;POTASSIUM CHLORIDE;SODIUM C [Concomitant]
  5. METHYLPREDNISOLONE [Concomitant]
     Active Substance: METHYLPREDNISOLONE
  6. IPRATROPIUM BROMIDE [Concomitant]
     Active Substance: IPRATROPIUM BROMIDE\IPRATROPIUM BROMIDE ANHYDROUS
  7. OLANZAPINE [Concomitant]
     Active Substance: OLANZAPINE
  8. FUROSEMIDE [Concomitant]
     Active Substance: FUROSEMIDE
  9. OXYGEN [Concomitant]
     Active Substance: OXYGEN
  10. ALBUTEROL [Concomitant]
     Active Substance: ALBUTEROL
  11. ALBUTEROL [Concomitant]
     Active Substance: ALBUTEROL

REACTIONS (1)
  - Drug ineffective [Fatal]

NARRATIVE: CASE EVENT DATE: 20220120
